FAERS Safety Report 13452095 (Version 1)
Quarter: 2017Q2

REPORT INFORMATION
  Report Type: Spontaneous
  Country: GB (occurrence: GB)
  Receive Date: 20170418
  Receipt Date: 20170418
  Transmission Date: 20170830
  Serious: Yes (Hospitalization, Other)
  Sender: FDA-Public Use
  Company Number: GB-AMGEN-GBRSP2016021009

PATIENT
  Age: 71 Year
  Sex: Female

DRUGS (16)
  1. OMEPRAZOLE. [Concomitant]
     Active Substance: OMEPRAZOLE
  2. ATORVASTATIN [Concomitant]
     Active Substance: ATORVASTATIN
  3. PIRITON [Concomitant]
     Active Substance: CHLORPHENIRAMINE MALEATE
  4. EXJADE [Concomitant]
     Active Substance: DEFERASIROX
  5. BUTRANS [Concomitant]
     Active Substance: BUPRENORPHINE
     Dosage: PATCH
  6. ARANESP [Suspect]
     Active Substance: DARBEPOETIN ALFA
     Indication: PRODUCT USED FOR UNKNOWN INDICATION
     Dosage: UNK
     Route: 065
  7. BONVIVA [Concomitant]
     Active Substance: IBANDRONATE SODIUM
  8. PREGABALIN. [Concomitant]
     Active Substance: PREGABALIN
  9. FOLIC ACID. [Concomitant]
     Active Substance: FOLIC ACID
  10. SOLIRIS [Concomitant]
     Active Substance: ECULIZUMAB
  11. CANDESARTAN. [Concomitant]
     Active Substance: CANDESARTAN
  12. VITAMIN D [Concomitant]
     Active Substance: CHOLECALCIFEROL
  13. PENICILLIN [Concomitant]
     Active Substance: PENICILLIN
  14. ECULIZUMAB [Concomitant]
     Active Substance: ECULIZUMAB
  15. CALFOVIT D3 [Concomitant]
  16. AMLODIPINE [Concomitant]
     Active Substance: AMLODIPINE BESYLATE

REACTIONS (4)
  - Pain [Unknown]
  - Vein disorder [Unknown]
  - Transfusion [Unknown]
  - Hordeolum [Unknown]

NARRATIVE: CASE EVENT DATE: 20170409
